FAERS Safety Report 9709970 (Version 1)
Quarter: 2013Q4

REPORT INFORMATION
  Report Type: Spontaneous
  Country: GB (occurrence: GB)
  Receive Date: 20131126
  Receipt Date: 20131126
  Transmission Date: 20140711
  Serious: Yes (Other)
  Sender: FDA-Public Use
  Company Number: PHHY2013GB133619

PATIENT
  Age: 37 Year
  Sex: Female

DRUGS (6)
  1. SUMATRIPTAN [Suspect]
     Indication: MIGRAINE
     Dosage: 50 MG, UNK
     Route: 048
     Dates: start: 20131105, end: 20131112
  2. DOMPERIDONE [Concomitant]
     Dosage: UNK
  3. NAPROXEN [Concomitant]
  4. OMEPRAZOLE [Concomitant]
  5. CO-CODAMOL [Concomitant]
  6. ORAL CONTRACEPTIVE NOS [Concomitant]

REACTIONS (2)
  - Loss of consciousness [Recovered/Resolved]
  - Dizziness [Unknown]
